FAERS Safety Report 7707635-9 (Version None)
Quarter: 2011Q3

REPORT INFORMATION
  Report Type: 
  Country: None (occurrence: None)
  Receive Date: 20110824
  Receipt Date: 20110815
  Transmission Date: 20111222
  Serious: Yes (Hospitalization, Other)
  Sender: FDA-Public Use
  Company Number: US-ELI_LILLY_AND_COMPANY-US201108004460

PATIENT
  Sex: Male

DRUGS (14)
  1. ZETIA [Concomitant]
  2. LISINOPRIL [Concomitant]
  3. LOVASTATIN [Concomitant]
  4. GLUCOTROL XL [Concomitant]
  5. FLEXERIL [Concomitant]
  6. ASPIRIN [Concomitant]
  7. PERCOCET [Concomitant]
  8. IBUPROFEN [Concomitant]
  9. TRAZODONE HCL [Concomitant]
  10. BYETTA [Suspect]
     Dosage: 10 UG, BID
  11. METOPROLIN [Concomitant]
  12. ALCOHOL [Concomitant]
  13. METFORMIN HCL [Concomitant]
  14. ADVICOR [Concomitant]

REACTIONS (7)
  - PANCREATITIS [None]
  - INTENTIONAL DRUG MISUSE [None]
  - PANCREATITIS ACUTE [None]
  - HEPATIC STEATOSIS [None]
  - HYPERTRIGLYCERIDAEMIA [None]
  - DIABETIC KETOACIDOSIS [None]
  - INJURY [None]
